FAERS Safety Report 6025393-3 (Version None)
Quarter: 2008Q4

REPORT INFORMATION
  Report Type: 
  Country: None (occurrence: None)
  Receive Date: 20081229
  Receipt Date: 20081229
  Transmission Date: 20090506
  Serious: No
  Sender: FDA-Public Use
  Company Number: None

PATIENT
  Age: 48 Year
  Sex: Female
  Weight: 79.8331 kg

DRUGS (1)
  1. GLADIUM CONTRAST DYE [Suspect]
     Dates: start: 20080630, end: 20080718

REACTIONS (5)
  - ABASIA [None]
  - ARTHRALGIA [None]
  - MUSCULOSKELETAL STIFFNESS [None]
  - RASH [None]
  - SWELLING [None]
